FAERS Safety Report 8239569-8 (Version None)
Quarter: 2012Q1

REPORT INFORMATION
  Report Type: 
  Country: None (occurrence: None)
  Receive Date: 20120328
  Receipt Date: 20120315
  Transmission Date: 20120608
  Serious: Yes (Hospitalization)
  Sender: FDA-Public Use
  Company Number: US-JNJFOC-20120309026

PATIENT
  Sex: Female

DRUGS (30)
  1. DURAGESIC-100 [Suspect]
     Route: 062
  2. FENTANYL-100 [Suspect]
     Indication: PAIN
     Route: 062
  3. FENTANYL-100 [Suspect]
     Route: 062
  4. FENTANYL-100 [Suspect]
     Route: 062
  5. DURAGESIC-100 [Suspect]
     Route: 062
  6. FENTANYL-100 [Suspect]
     Indication: ARTHRITIS
     Route: 062
  7. FENTANYL-100 [Suspect]
     Route: 062
  8. DURAGESIC-100 [Suspect]
     Route: 062
  9. FENTANYL-100 [Suspect]
     Route: 062
  10. FENTANYL-100 [Suspect]
     Route: 062
  11. FENTANYL-100 [Suspect]
     Route: 062
  12. DURAGESIC-100 [Suspect]
     Route: 062
  13. FENTANYL-100 [Suspect]
     Route: 062
  14. FENTANYL-100 [Suspect]
     Route: 062
  15. DURAGESIC-100 [Suspect]
     Indication: PAIN
     Route: 062
  16. DURAGESIC-100 [Suspect]
     Indication: ARTHRITIS
     Route: 062
  17. DURAGESIC-100 [Suspect]
     Route: 062
  18. DURAGESIC-100 [Suspect]
     Indication: FIBROMYALGIA
     Route: 062
  19. DURAGESIC-100 [Suspect]
     Route: 062
  20. FENTANYL-100 [Suspect]
     Indication: FIBROMYALGIA
     Route: 062
  21. FENTANYL-100 [Suspect]
     Route: 062
  22. DURAGESIC-100 [Suspect]
     Route: 062
  23. DURAGESIC-100 [Suspect]
     Route: 062
  24. FENTANYL-100 [Suspect]
     Route: 062
  25. FENTANYL-100 [Suspect]
     Route: 062
  26. DURAGESIC-100 [Suspect]
     Route: 062
  27. DURAGESIC-100 [Suspect]
     Route: 062
  28. DURAGESIC-100 [Suspect]
     Route: 062
  29. DURAGESIC-100 [Suspect]
     Route: 062
  30. FENTANYL-100 [Suspect]
     Route: 062

REACTIONS (7)
  - DRUG ADMINISTERED AT INAPPROPRIATE SITE [None]
  - DRUG INEFFECTIVE [None]
  - PRODUCT PACKAGING QUANTITY ISSUE [None]
  - STRESS [None]
  - ABDOMINAL ADHESIONS [None]
  - CONSTIPATION [None]
  - WRONG TECHNIQUE IN DRUG USAGE PROCESS [None]
